FAERS Safety Report 13408758 (Version 1)
Quarter: 2017Q2

REPORT INFORMATION
  Report Type: Spontaneous
  Country: US (occurrence: US)
  Receive Date: 20170406
  Receipt Date: 20170406
  Transmission Date: 20170830
  Serious: No
  Sender: FDA-Public Use
  Company Number: US-JNJFOC-20161113117

PATIENT
  Age: 8 Year
  Sex: Male

DRUGS (1)
  1. RISPERDAL [Suspect]
     Active Substance: RISPERIDONE
     Indication: BIPOLAR DISORDER
     Route: 048
     Dates: start: 200301, end: 200701

REACTIONS (6)
  - Akathisia [Unknown]
  - Weight increased [Unknown]
  - Gynaecomastia [Unknown]
  - Dystonia [Unknown]
  - Emotional disorder [Unknown]
  - Insomnia [Unknown]

NARRATIVE: CASE EVENT DATE: 200401
